FAERS Safety Report 9865461 (Version 2)
Quarter: 2014Q1

REPORT INFORMATION
  Report Type: Spontaneous
  Country: US (occurrence: US)
  Receive Date: 20140203
  Receipt Date: 20140203
  Transmission Date: 20141002
  Serious: No
  Sender: FDA-Public Use
  Company Number: US-ALLERGAN-1308392US

PATIENT
  Age: 77 Year
  Sex: Female

DRUGS (3)
  1. BLOOD PRESSURE MEDICATION NOS [Concomitant]
     Indication: PRODUCT USED FOR UNKNOWN INDICATION
  2. RESTASIS [Suspect]
     Indication: DRY EYE
     Dosage: 2 GTT, BID
     Route: 047
     Dates: start: 20130605
  3. FML [Concomitant]
     Indication: ANTIINFLAMMATORY THERAPY
     Dosage: UNK

REACTIONS (5)
  - Blood pressure increased [Recovered/Resolved]
  - Rash [Recovered/Resolved]
  - Rash [Recovered/Resolved]
  - Rash [Recovered/Resolved]
  - Eye inflammation [Not Recovered/Not Resolved]
